FAERS Safety Report 9705834 (Version 2)
Quarter: 2013Q4

REPORT INFORMATION
  Report Type: Spontaneous
  Country: US (occurrence: US)
  Receive Date: 20131122
  Receipt Date: 20131122
  Transmission Date: 20140711
  Serious: No
  Sender: FDA-Public Use
  Company Number: US-GILEAD-2008-0017936

PATIENT
  Age: 61 Year
  Sex: Female

DRUGS (8)
  1. LETAIRIS [Suspect]
     Indication: PULMONARY ARTERIAL HYPERTENSION
     Route: 048
     Dates: start: 20071119
  2. PREDNISONE [Concomitant]
  3. SEPTRA [Concomitant]
  4. PRILOSEC [Concomitant]
  5. ALLEGRA [Concomitant]
  6. VIAGRA [Concomitant]
  7. SYNTHROID [Concomitant]
  8. GLUCOSAMINE [Concomitant]

REACTIONS (1)
  - White blood cell count increased [Recovered/Resolved]
